FAERS Safety Report 11459850 (Version 1)
Quarter: 2015Q3

REPORT INFORMATION
  Report Type: Spontaneous
  Country: US (occurrence: US)
  Receive Date: 20150904
  Receipt Date: 20150904
  Transmission Date: 20151125
  Serious: Yes (Hospitalization, Other)
  Sender: FDA-Public Use
  Company Number: US-PFIZER INC-2015286649

PATIENT
  Age: 56 Year
  Sex: Female
  Weight: 64 kg

DRUGS (8)
  1. LYRICA [Suspect]
     Active Substance: PREGABALIN
     Dosage: 50 MG, UNK
  2. OXYCODONE [Concomitant]
     Active Substance: OXYCODONE
     Indication: SURGERY
     Dosage: 10/325 MG
  3. OXYCODONE [Concomitant]
     Active Substance: OXYCODONE
     Indication: SPINAL FRACTURE
  4. PROZAC [Concomitant]
     Active Substance: FLUOXETINE HYDROCHLORIDE
     Dosage: 20 MG AND A 40 MG CAPSULE TOGETHER IN THE MORNING
  5. OXYCODONE [Concomitant]
     Active Substance: OXYCODONE
     Indication: LIMB OPERATION
  6. LYRICA [Suspect]
     Active Substance: PREGABALIN
     Indication: INSOMNIA
     Dosage: 25 MG, 2X/DAY
  7. LYRICA [Suspect]
     Active Substance: PREGABALIN
     Dosage: 75 MG, UNK
     Route: 048
     Dates: start: 201505
  8. AMLODIPINE BESYLATE. [Concomitant]
     Active Substance: AMLODIPINE BESYLATE
     Indication: BLOOD PRESSURE MEASUREMENT
     Dosage: 2.5 MG, DAILY

REACTIONS (6)
  - Anxiety [Unknown]
  - Off label use [Unknown]
  - Product packaging issue [Unknown]
  - Dyspnoea [Unknown]
  - Panic attack [Unknown]
  - Weight increased [Unknown]

NARRATIVE: CASE EVENT DATE: 201505
